FAERS Safety Report 5048761-5 (Version None)
Quarter: 2006Q3

REPORT INFORMATION
  Report Type: 
  Country: None (occurrence: None)
  Receive Date: 20060705
  Receipt Date: 20060616
  Transmission Date: 20061208
  Serious: Yes (Other)
  Sender: FDA-Public Use
  Company Number: FR200605003760

PATIENT
  Age: 68 Year
  Sex: Female
  Weight: 75 kg

DRUGS (6)
  1. FORTEO [Suspect]
     Indication: OSTEOPOROSIS
     Dosage: 20 UG, DAILY (1/D), SUBCUTANEOUS
     Route: 058
     Dates: start: 20051016, end: 20060505
  2. FORTEO [Concomitant]
  3. ASPIRIN [Concomitant]
  4. ZANIDIP (LERCANIDIPINE HYDROCHLORIDE) [Concomitant]
  5. OROCAL D (3) (CALCIUM CARBONATE, COLECALCIFEROL) [Concomitant]
  6. TRIATEC [Concomitant]

REACTIONS (14)
  - ANGIONEUROTIC OEDEMA [None]
  - ARTHRALGIA [None]
  - CARDIOMEGALY [None]
  - FATIGUE [None]
  - GASTROENTERITIS [None]
  - HEADACHE [None]
  - INFLAMMATION [None]
  - MUSCLE SPASMS [None]
  - MYALGIA [None]
  - OEDEMA PERIPHERAL [None]
  - PERICARDIAL EFFUSION [None]
  - PERICARDITIS [None]
  - TACHYCARDIA [None]
  - VIRAL PERICARDITIS [None]
